FAERS Safety Report 4451387-5 (Version None)
Quarter: 2004Q3

REPORT INFORMATION
  Report Type: 
  Country: None (occurrence: None)
  Receive Date: 20040915
  Receipt Date: 20040901
  Transmission Date: 20050211
  Serious: Yes (Disabling, Other)
  Sender: FDA-Public Use
  Company Number: 2004046517

PATIENT
  Age: 63 Year
  Sex: Male

DRUGS (4)
  1. VIAGRA [Suspect]
     Indication: ERECTILE DYSFUNCTION
     Dosage: UNK (50 MG, AS NECESSARY), ORAL
     Route: 048
     Dates: start: 19980401, end: 20031101
  2. SERETIDE MITE (FLUTICASONE PROPIONATE, SALMETEROL XINAFOATE) [Concomitant]
  3. LEVOTHYROXINE SODIUM [Concomitant]
  4. SALBUTAMOL (SALBUTAMOL) [Concomitant]

REACTIONS (2)
  - ISCHAEMIC STROKE [None]
  - VISUAL FIELD DEFECT [None]
